FAERS Safety Report 8190177-7 (Version None)
Quarter: 2012Q1

REPORT INFORMATION
  Report Type: 
  Country: None (occurrence: None)
  Receive Date: 20120307
  Receipt Date: 20120223
  Transmission Date: 20120608
  Serious: Yes (Hospitalization)
  Sender: FDA-Public Use
  Company Number: FR-SANOFI-AVENTIS-2012SA012032

PATIENT
  Age: 86 Year
  Sex: Female

DRUGS (11)
  1. MEDIATENSYL [Concomitant]
     Route: 048
  2. NICARDIPINE HYDROCHLORIDE [Concomitant]
     Route: 048
  3. LASIX [Suspect]
     Route: 048
  4. ALISKIREN [Concomitant]
     Route: 048
  5. FEBUXOSTAT [Concomitant]
     Route: 048
  6. PREVISCAN [Concomitant]
     Indication: CARDIOVASCULAR EVENT PROPHYLAXIS
     Dosage: DOSE, FREQUENCY: 15MG ONE DAY AND 20 MG THE OTHER DAY
     Route: 048
     Dates: end: 20111206
  7. LANSOPRAZOLE [Concomitant]
     Route: 048
  8. FERROUS SULFATE TAB [Concomitant]
     Route: 048
  9. ATROVENT [Concomitant]
     Dosage: ROUTE: RESPIRATORY DOSE:2 UNIT(S)
     Route: 045
  10. LASIX [Suspect]
     Route: 048
     Dates: end: 20111202
  11. BUDESONIDE [Concomitant]
     Dosage: DOSE:2 UNIT(S)
     Route: 045

REACTIONS (2)
  - HYPERKALAEMIA [None]
  - HYPONATRAEMIA [None]
